FAERS Safety Report 8861566 (Version 1)
Quarter: 2012Q4

REPORT INFORMATION
  Report Type: 
  Country: US (occurrence: US)
  Receive Date: 20121025
  Receipt Date: 20121025
  Transmission Date: 20130627
  Serious: No
  Sender: FDA-Public Use
  Company Number: US-AMGEN-USASP2012016976

PATIENT
  Sex: Female

DRUGS (5)
  1. ENBREL [Suspect]
     Indication: PRODUCT USED FOR UNKNOWN INDICATION
     Dosage: 25 mg, 2 times/wk
  2. CARDIZEM                           /00489701/ [Concomitant]
     Dosage: 30 mg, UNK
  3. ZOCOR [Concomitant]
     Dosage: 5 mg, UNK
  4. ASPIRIN [Concomitant]
     Dosage: 81 mg, UNK
  5. FISH OIL [Concomitant]

REACTIONS (1)
  - Therapeutic response decreased [Unknown]
